FAERS Safety Report 8186629-6 (Version None)
Quarter: 2012Q1

REPORT INFORMATION
  Report Type: 
  Country: None (occurrence: None)
  Receive Date: 20120306
  Receipt Date: 20120302
  Transmission Date: 20120608
  Serious: No
  Sender: FDA-Public Use
  Company Number: US-PFIZER INC-2012056934

PATIENT
  Sex: Female
  Weight: 68 kg

DRUGS (13)
  1. LEVOXYL [Concomitant]
     Dosage: UNK
  2. DESMOPRESSIN [Concomitant]
     Dosage: UNK
  3. VITAMIN D [Concomitant]
     Dosage: UNK
  4. GENOTROPIN [Suspect]
     Indication: HYPOPITUITARISM
     Dosage: 0.2 MG, 1X/DAY
     Route: 058
     Dates: start: 20110101, end: 20110101
  5. SINGULAIR [Concomitant]
     Dosage: UNK
  6. IMITREX [Concomitant]
     Dosage: UNK
  7. KETOPROFEN [Concomitant]
     Dosage: UNK
  8. HYDROCORTISONE [Concomitant]
     Dosage: UNK
  9. PROGESTERONE [Concomitant]
     Dosage: UNK
  10. AMITRIPTYLINE [Concomitant]
     Dosage: UNK
  11. ATENOLOL [Concomitant]
     Dosage: UNK
  12. POTASSIUM [Concomitant]
     Dosage: UNK
  13. BONIVA [Concomitant]
     Dosage: UNK

REACTIONS (1)
  - INSULIN-LIKE GROWTH FACTOR DECREASED [None]
